FAERS Safety Report 4340453-0 (Version None)
Quarter: 2004Q2

REPORT INFORMATION
  Report Type: 
  Country: None (occurrence: None)
  Receive Date: 20040414
  Receipt Date: 20040330
  Transmission Date: 20050107
  Serious: Yes (Death)
  Sender: FDA-Public Use
  Company Number: 2004207010IN

PATIENT
  Sex: Female

DRUGS (2)
  1. SOLU-MEDROL [Suspect]
     Indication: CHRONIC OBSTRUCTIVE AIRWAYS DISEASE
     Dosage: 125 MG, QD, IV
     Route: 042
  2. MOXIFLOXACIN HCL [Concomitant]

REACTIONS (3)
  - FLUID RETENTION [None]
  - LOWER RESPIRATORY TRACT INFECTION [None]
  - RESPIRATORY FAILURE [None]
